FAERS Safety Report 8854238 (Version 2)
Quarter: 2013Q3

REPORT INFORMATION
  Report Type: Report from Study
  Country: US (occurrence: US)
  Receive Date: 20121022
  Receipt Date: 20130813
  Transmission Date: 20140515
  Serious: No
  Sender: FDA-Public Use
  Company Number: PHEH2012US020612

PATIENT
  Age: 47 Year
  Sex: Female

DRUGS (7)
  1. TASIGNA [Suspect]
     Indication: CHRONIC MYELOID LEUKAEMIA
     Dosage: 300 MG, Q12H
     Route: 048
     Dates: start: 20120425, end: 20120630
  2. SAVELLA [Concomitant]
  3. NASONEX [Concomitant]
  4. OXYCONTIN [Concomitant]
  5. HYDROCODONE [Concomitant]
  6. ALLOPURINOL [Concomitant]
  7. LYRICA [Concomitant]

REACTIONS (1)
  - Exposure during pregnancy [Unknown]
